FAERS Safety Report 21196352 (Version 3)
Quarter: 2022Q3

REPORT INFORMATION
  Report Type: Spontaneous
  Country: AU (occurrence: AU)
  Receive Date: 20220810
  Receipt Date: 20220826
  Transmission Date: 20221026
  Serious: Yes (Other)
  Sender: FDA-Public Use
  Company Number: AU-NOVARTISPH-NVSC2022AU179432

PATIENT
  Sex: Male

DRUGS (1)
  1. DEXAMETHASONE [Suspect]
     Active Substance: DEXAMETHASONE
     Indication: Product used for unknown indication
     Dosage: UNK
     Route: 065

REACTIONS (7)
  - Histiocytosis [Unknown]
  - Ataxia [Unknown]
  - Peroneal nerve palsy [Unknown]
  - Cerebrovascular disorder [Unknown]
  - Lung disorder [Unknown]
  - Disease progression [Unknown]
  - Therapy non-responder [Unknown]
